FAERS Safety Report 12125753 (Version 1)
Quarter: 2016Q1

REPORT INFORMATION
  Report Type: Spontaneous
  Country: US (occurrence: None)
  Receive Date: 20160226
  Receipt Date: 20160226
  Transmission Date: 20160526
  Serious: Yes (Life-Threatening, Hospitalization)
  Sender: FDA-Public Use
  Company Number: None

PATIENT
  Age: 61 Year
  Sex: Female
  Weight: 85 kg

DRUGS (26)
  1. ALBUTEROL. [Concomitant]
     Active Substance: ALBUTEROL
  2. DULOXETINE. [Concomitant]
     Active Substance: DULOXETINE
  3. NITROGLYCERIN OINTMENT [Concomitant]
  4. FLUPHENAZINE [Concomitant]
     Active Substance: FLUPHENAZINE
  5. DIPHENHYDRAMINE. [Concomitant]
     Active Substance: DIPHENHYDRAMINE
  6. HYDROCODONE [Concomitant]
     Active Substance: HYDROCODONE
  7. LUMASON [Suspect]
     Active Substance: 1,2-DIPALMITOYL-SN-GLYCERO-3-PHOSPHO-(1^-RAC-GLYCEROL), SODIUM SALT\DISTEAROYLPHOSPHATIDYLCHOLINE, DL-\SULFUR HEXAFLUORIDE
     Indication: CARDIAC STRESS TEST
     Dosage: 2 ML PROCEDURAL INTRAVENOUS
     Route: 042
     Dates: start: 20160219, end: 20160219
  8. HYDROCORTISONE. [Concomitant]
     Active Substance: HYDROCORTISONE
  9. AMLODIPINE [Concomitant]
     Active Substance: AMLODIPINE BESYLATE
  10. FONDAPARINUX [Concomitant]
     Active Substance: FONDAPARINUX
  11. IRON POLYSACCHARIDES [Concomitant]
  12. NICOTINE. [Concomitant]
     Active Substance: NICOTINE
  13. LUMASON [Suspect]
     Active Substance: 1,2-DIPALMITOYL-SN-GLYCERO-3-PHOSPHO-(1^-RAC-GLYCEROL), SODIUM SALT\DISTEAROYLPHOSPHATIDYLCHOLINE, DL-\SULFUR HEXAFLUORIDE
     Indication: ECHOCARDIOGRAM
     Dosage: 2 ML PROCEDURAL INTRAVENOUS
     Route: 042
     Dates: start: 20160219, end: 20160219
  14. LORATADINE. [Concomitant]
     Active Substance: LORATADINE
  15. BUDESONIDE-FORMOTEROL [Concomitant]
     Active Substance: BUDESONIDE\FORMOTEROL
  16. GEMFIBROZIL. [Concomitant]
     Active Substance: GEMFIBROZIL
  17. INSULIN ASPART [Concomitant]
     Active Substance: INSULIN ASPART
  18. PANTOPRAZOLE EC [Concomitant]
  19. ROFLUMILAST [Concomitant]
     Active Substance: ROFLUMILAST
  20. VILAZODONE [Concomitant]
     Active Substance: VILAZODONE
  21. HYDROCHLOROTHIAZIDE. [Concomitant]
     Active Substance: HYDROCHLOROTHIAZIDE
  22. LISINOPRIL. [Concomitant]
     Active Substance: LISINOPRIL
  23. ABILIFY MAINTENA [Concomitant]
     Active Substance: ARIPIPRAZOLE
  24. CLONAZEPAM. [Concomitant]
     Active Substance: CLONAZEPAM
  25. FUROSEMIDE. [Concomitant]
     Active Substance: FUROSEMIDE
  26. METOPROLOL TARTRATE. [Concomitant]
     Active Substance: METOPROLOL TARTRATE

REACTIONS (5)
  - Contrast media reaction [None]
  - Blood pressure immeasurable [None]
  - Anaphylactic reaction [None]
  - Incorrect dose administered [None]
  - Pulse absent [None]

NARRATIVE: CASE EVENT DATE: 20160219
